FAERS Safety Report 21660332 (Version 1)
Quarter: 2022Q4

REPORT INFORMATION
  Report Type: Spontaneous
  Country: KE (occurrence: KE)
  Receive Date: 20221130
  Receipt Date: 20221130
  Transmission Date: 20230112
  Serious: Yes (Hospitalization, Other)
  Sender: FDA-Public Use
  Company Number: KE-SUN PHARMACEUTICAL INDUSTRIES LTD-2022R1-366240

PATIENT
  Age: 17 Year
  Sex: Female

DRUGS (1)
  1. METHOTREXATE [Suspect]
     Active Substance: METHOTREXATE
     Indication: Takayasu^s arteritis
     Dosage: 25 MILLIGRAM, DAILY
     Route: 065

REACTIONS (8)
  - Toxicity to various agents [Unknown]
  - Mucosal inflammation [Unknown]
  - Abdominal tenderness [Unknown]
  - Odynophagia [Unknown]
  - Abdominal pain [Unknown]
  - Stomatitis [Unknown]
  - Mouth ulceration [Unknown]
  - Incorrect dosage administered [Unknown]
